FAERS Safety Report 17242895 (Version 1)
Quarter: 2020Q1

REPORT INFORMATION
  Report Type: Spontaneous
  Country: BR (occurrence: BR)
  Receive Date: 20200107
  Receipt Date: 20200107
  Transmission Date: 20200409
  Serious: Yes (Other)
  Sender: FDA-Public Use
  Company Number: BR-009507513-2001BRA000408

PATIENT
  Age: 58 Year
  Sex: Female
  Weight: 70 kg

DRUGS (9)
  1. PREGABALIN. [Concomitant]
     Active Substance: PREGABALIN
     Dosage: 75 (UNIT UNSPECIFIED) OCASIONALLY
     Route: 048
  2. GLIFAGE [Concomitant]
     Active Substance: METFORMIN HYDROCHLORIDE
     Dosage: 1 TABLET, DAILY (QD)
     Route: 048
  3. ROSUVASTATIN. [Concomitant]
     Active Substance: ROSUVASTATIN
     Dosage: 1 TABLET, AT NIGHT (QD)
     Route: 048
  4. FLUOXETIN [Concomitant]
     Active Substance: FLUOXETINE HYDROCHLORIDE
     Dosage: 2 TABLETS, DAILY (QD)
     Route: 048
  5. ARTROLIVE [Concomitant]
     Active Substance: CHONDROITIN SULFATE (BOVINE)\GLUCOSAMINE SULFATE
     Dosage: 1 SACHET DAILY (QD)
     Route: 048
  6. FOSAMAX PLUS D [Suspect]
     Active Substance: ALENDRONATE SODIUM\CHOLECALCIFEROL
     Indication: OSTEOPOROSIS
     Dosage: STRENGTH: 70MG 5600UI; 1 TABLET PER WEEK
     Route: 048
     Dates: start: 20191205
  7. FOSAMAX PLUS D [Suspect]
     Active Substance: ALENDRONATE SODIUM\CHOLECALCIFEROL
     Dosage: STRENGTH: 70MG 5600UI; 1 TABLET PER WEEK (AT 06:00 PM)
     Route: 048
     Dates: start: 201912
  8. PANTOPRAZOLE [Concomitant]
     Active Substance: PANTOPRAZOLE
     Dosage: 1 TABLET IN THE MORNING WHILE FASTING
     Route: 048
  9. MAGNESIUM CHLORIDE. [Concomitant]
     Active Substance: MAGNESIUM CHLORIDE
     Dosage: 1/2 TEASPOON, DAILY (QD)
     Route: 048

REACTIONS (11)
  - Gastritis [Not Recovered/Not Resolved]
  - Bone pain [Recovered/Resolved]
  - Adverse event [Not Recovered/Not Resolved]
  - Blood cholesterol increased [Not Recovered/Not Resolved]
  - Fibromyalgia [Not Recovered/Not Resolved]
  - Pain [Not Recovered/Not Resolved]
  - Circumstance or information capable of leading to medication error [Unknown]
  - Diabetes mellitus [Not Recovered/Not Resolved]
  - Headache [Recovered/Resolved]
  - Wrong technique in product usage process [Unknown]
  - Product dose omission [Unknown]

NARRATIVE: CASE EVENT DATE: 20191205
